FAERS Safety Report 8879066 (Version 1)
Quarter: 2012Q4

REPORT INFORMATION
  Report Type: Spontaneous
  Country: US (occurrence: None)
  Receive Date: 20121031
  Receipt Date: 20121031
  Transmission Date: 20130627
  Serious: Yes (Other)
  Sender: FDA-Public Use
  Company Number: None

PATIENT
  Age: 36 Year
  Sex: Female
  Weight: 73.94 kg

DRUGS (1)
  1. ESCITALOPRAM OXALATE [Suspect]
     Indication: RENAL FAILURE
     Route: 048
     Dates: start: 201209, end: 201210

REACTIONS (11)
  - Drug effect decreased [None]
  - Product substitution issue [None]
  - Product quality issue [None]
  - Panic attack [None]
  - Insomnia [None]
  - Nausea [None]
  - Feeling jittery [None]
  - Pruritus generalised [None]
  - Blood pressure increased [None]
  - Headache [None]
  - Depression [None]
